FAERS Safety Report 6919502-9 (Version None)
Quarter: 2010Q3

REPORT INFORMATION
  Report Type: 
  Country: None (occurrence: None)
  Receive Date: 20100810
  Receipt Date: 20100810
  Transmission Date: 20110219
  Serious: No
  Sender: FDA-Public Use
  Company Number: None

PATIENT
  Age: 58 Year
  Sex: Female

DRUGS (5)
  1. ASPARAGINASE [Suspect]
     Dosage: 9600 IU IV (10/2, 10/4, 10/6 AND 10/9/08)
     Dates: start: 20081002, end: 20081009
  2. ONCOVIN [Suspect]
     Dosage: 2 MG IV Q WEEKLY (9/30, 10/7 AND 10/13/08)
     Dates: start: 20080930, end: 20081013
  3. FLUCONAZOLE [Concomitant]
  4. DAUNORUBICIN HCL [Concomitant]
  5. CIPROFLOXACIN [Concomitant]

REACTIONS (2)
  - LIVER FUNCTION TEST ABNORMAL [None]
  - LIVER INJURY [None]
